FAERS Safety Report 5498289-3 (Version None)
Quarter: 2007Q4

REPORT INFORMATION
  Report Type: 
  Country: None (occurrence: None)
  Receive Date: 20071025
  Receipt Date: 20070425
  Transmission Date: 20080405
  Serious: No
  Sender: FDA-Public Use
  Company Number: A0648728A

PATIENT
  Age: 5 Year
  Sex: Male

DRUGS (3)
  1. ADVAIR DISKUS 100/50 [Suspect]
     Indication: ASTHMA
     Dosage: 1PUFF TWICE PER DAY
     Route: 055
     Dates: start: 20070301, end: 20070401
  2. PREDNISOLONE EYE DROPS [Concomitant]
  3. HYDROXYZINE [Concomitant]

REACTIONS (3)
  - RASH [None]
  - RASH GENERALISED [None]
  - RASH PRURITIC [None]
